FAERS Safety Report 7619586-9 (Version None)
Quarter: 2011Q3

REPORT INFORMATION
  Report Type: 
  Country: None (occurrence: None)
  Receive Date: 20110719
  Receipt Date: 20110708
  Transmission Date: 20111222
  Serious: Yes (Hospitalization)
  Sender: FDA-Public Use
  Company Number: DK-JNJFOC-20110204671

PATIENT
  Sex: Male
  Weight: 80 kg

DRUGS (3)
  1. REMICADE [Suspect]
     Indication: ANKYLOSING SPONDYLITIS
     Route: 042
     Dates: start: 20091029, end: 20101216
  2. IBRUPROFEN [Concomitant]
     Indication: ANKYLOSING SPONDYLITIS
     Route: 065
  3. BRUFEN RETARD [Concomitant]
     Indication: ANKYLOSING SPONDYLITIS
     Route: 065

REACTIONS (1)
  - CONGESTIVE CARDIOMYOPATHY [None]
